FAERS Safety Report 9607007 (Version 1)
Quarter: 2013Q4

REPORT INFORMATION
  Report Type: Spontaneous
  Country: US (occurrence: IT)
  Receive Date: 20131009
  Receipt Date: 20131009
  Transmission Date: 20140711
  Serious: Yes (Other)
  Sender: FDA-Public Use
  Company Number: 2013SP007073

PATIENT
  Age: 24 Year
  Sex: Male

DRUGS (2)
  1. HALOPERIDOL DECANOATE [Suspect]
     Indication: THINKING ABNORMAL
     Route: 030
  2. VALPROATE SODIUM [Concomitant]

REACTIONS (4)
  - Hypothermia [Unknown]
  - Weight decreased [Unknown]
  - Chills [Unknown]
  - Fatigue [Unknown]
